FAERS Safety Report 17617119 (Version 1)
Quarter: 2020Q2

REPORT INFORMATION
  Report Type: Spontaneous
  Country: US (occurrence: US)
  Receive Date: 20200402
  Receipt Date: 20200402
  Transmission Date: 20200713
  Serious: No
  Sender: FDA-Public Use
  Company Number: US-SA-2020SA081148

PATIENT
  Sex: Female

DRUGS (2)
  1. DUPIXENT [Suspect]
     Active Substance: DUPILUMAB
     Dosage: 300 MG, QOW
     Route: 058
  2. DUPIXENT [Suspect]
     Active Substance: DUPILUMAB
     Indication: ASTHMA
     Dosage: 300 UNK
     Route: 058
     Dates: start: 20191119, end: 20200317

REACTIONS (4)
  - Vision blurred [Unknown]
  - Eye pain [Unknown]
  - Facial pain [Unknown]
  - Knee arthroplasty [Recovering/Resolving]
